FAERS Safety Report 8152045 (Version 3)
Quarter: 2012Q4

REPORT INFORMATION
  Report Type: 
  Country: US (occurrence: US)
  Receive Date: 20110922
  Receipt Date: 20120919
  Transmission Date: 20130627
  Serious: No
  Sender: FDA-Public Use
  Company Number: US-ASTRAZENECA-2010SE57826

PATIENT
  Age: 45 Year
  Sex: Male
  Weight: 72.6 kg

DRUGS (5)
  1. SEROQUEL [Suspect]
     Indication: INSOMNIA
     Route: 048
  2. SEROQUEL [Suspect]
     Indication: BIPOLAR II DISORDER
     Route: 048
  3. SEROQUEL [Suspect]
     Indication: INSOMNIA
     Route: 048
     Dates: start: 2005, end: 20101027
  4. SEROQUEL [Suspect]
     Indication: BIPOLAR II DISORDER
     Route: 048
     Dates: start: 2005, end: 20101027
  5. LORTAB 10 [Concomitant]

REACTIONS (9)
  - Headache [Not Recovered/Not Resolved]
  - Adverse event [Unknown]
  - Impaired work ability [Unknown]
  - Activities of daily living impaired [Unknown]
  - Insomnia [Unknown]
  - Intentional drug misuse [Unknown]
  - Tremor [Not Recovered/Not Resolved]
  - Drug ineffective for unapproved indication [Recovered/Resolved]
  - Drug dose omission [Unknown]
